FAERS Safety Report 8468919-2 (Version None)
Quarter: 2012Q2

REPORT INFORMATION
  Report Type: 
  Country: None (occurrence: None)
  Receive Date: 20120626
  Receipt Date: 20120619
  Transmission Date: 20120825
  Serious: Yes (Hospitalization, Other)
  Sender: FDA-Public Use
  Company Number: JP-BAXTER-2012BAX006899

PATIENT
  Sex: Male
  Weight: 56 kg

DRUGS (3)
  1. SELBEX [Concomitant]
     Indication: ANALGESIC THERAPY
     Route: 048
     Dates: start: 20120404, end: 20120428
  2. FEIBA [Suspect]
     Indication: HAEMOSTASIS
     Route: 042
     Dates: start: 20120502, end: 20120517
  3. LOXONIN [Concomitant]
     Indication: ANALGESIC THERAPY
     Route: 048
     Dates: start: 20120404, end: 20120428

REACTIONS (2)
  - DECREASED APPETITE [None]
  - ABDOMINAL DISCOMFORT [None]
